FAERS Safety Report 10670157 (Version 1)
Quarter: 2014Q4

REPORT INFORMATION
  Report Type: Spontaneous
  Country: US (occurrence: US)
  Receive Date: 20141223
  Receipt Date: 20141223
  Transmission Date: 20150529
  Serious: Yes (Other)
  Sender: FDA-Public Use
  Company Number: US-ELI_LILLY_AND_COMPANY-US201412006865

PATIENT
  Sex: Male

DRUGS (1)
  1. CYMBALTA [Suspect]
     Active Substance: DULOXETINE HYDROCHLORIDE
     Indication: DEPRESSION
     Dosage: UNK
     Route: 065
     Dates: start: 200801, end: 200901

REACTIONS (21)
  - Nightmare [Unknown]
  - Nausea [Unknown]
  - Dizziness [Unknown]
  - Chills [Unknown]
  - Mood swings [Unknown]
  - Movement disorder [Unknown]
  - Drug withdrawal syndrome [Unknown]
  - Agitation [Unknown]
  - Paraesthesia [Unknown]
  - Chest discomfort [Unknown]
  - Myalgia [Unknown]
  - Abdominal pain upper [Unknown]
  - Suicidal ideation [Unknown]
  - Fatigue [Unknown]
  - Irritability [Unknown]
  - Vertigo [Unknown]
  - Arthralgia [Unknown]
  - Sleep disorder [Unknown]
  - Dyspepsia [Unknown]
  - Muscle spasms [Unknown]
  - Insomnia [Unknown]
